FAERS Safety Report 15112158 (Version 2)
Quarter: 2018Q3

REPORT INFORMATION
  Report Type: Spontaneous
  Country: US (occurrence: US)
  Receive Date: 20180705
  Receipt Date: 20180720
  Transmission Date: 20181010
  Serious: Yes (Other)
  Sender: FDA-Public Use
  Company Number: US-ASTRAZENECA-2018SE84616

PATIENT
  Age: 65 Year
  Sex: Female

DRUGS (3)
  1. XOLAIR [Concomitant]
     Active Substance: OMALIZUMAB
  2. FASENRA [Suspect]
     Active Substance: BENRALIZUMAB
     Indication: ASTHMA
     Route: 058
  3. FASENRA [Suspect]
     Active Substance: BENRALIZUMAB
     Indication: ASTHMA
     Route: 058
     Dates: start: 20180615

REACTIONS (5)
  - Pruritus [Unknown]
  - Chest discomfort [Unknown]
  - Hypoaesthesia oral [Unknown]
  - Urticaria [Unknown]
  - Anaphylactic reaction [Unknown]
